FAERS Safety Report 9329916 (Version 1)
Quarter: 2013Q2

REPORT INFORMATION
  Report Type: Spontaneous
  Country: CO (occurrence: CO)
  Receive Date: 20130604
  Receipt Date: 20130604
  Transmission Date: 20140414
  Serious: Yes (Hospitalization)
  Sender: FDA-Public Use
  Company Number: CO-ASTRAZENECA-2013SE40018

PATIENT
  Age: 95 Day
  Sex: Female
  Weight: 4 kg

DRUGS (4)
  1. SYNAGIS [Suspect]
     Indication: BRONCHOPULMONARY DYSPLASIA
     Route: 030
     Dates: start: 20130323
  2. LEVOTHYROXINE [Concomitant]
  3. HYDROCHLOROTHIAZIDE [Concomitant]
  4. RANITIDINE [Concomitant]

REACTIONS (3)
  - Pneumonia [Unknown]
  - Cyanosis [Unknown]
  - Crying [Unknown]
